FAERS Safety Report 11142442 (Version 1)
Quarter: 2015Q2

REPORT INFORMATION
  Report Type: Spontaneous
  Country: US (occurrence: US)
  Receive Date: 20150527
  Receipt Date: 20150527
  Transmission Date: 20150821
  Serious: No
  Sender: FDA-Public Use
  Company Number: US-PFIZER INC-2015167243

PATIENT
  Age: 55 Year
  Sex: Female
  Weight: 65.49 kg

DRUGS (18)
  1. VITAMIN C [Concomitant]
     Active Substance: ASCORBIC ACID
     Dosage: 500 MG, UNK
     Route: 048
     Dates: end: 20150408
  2. VERAPAMIL HCL [Concomitant]
     Active Substance: VERAPAMIL HYDROCHLORIDE
     Dosage: 240 MG, 1X/DAY
     Route: 048
  3. HYDROCODONE BITARTRATE AND ACETAMINOPHEN [Concomitant]
     Active Substance: ACETAMINOPHEN\HYDROCODONE BITARTRATE
     Dosage: 1 DF, AS NEEDED,(HYDROCODONE10MG-ACETAMINOPHEN325MG), (EVERY 6 HRS)
     Route: 048
     Dates: end: 20150110
  4. PREVACID [Concomitant]
     Active Substance: LANSOPRAZOLE
     Dosage: 30 MG, 1X/DAY (BEFORE A MEAL)
     Route: 048
  5. LYRICA [Suspect]
     Active Substance: PREGABALIN
     Dosage: 150 MG, 2X/DAY
     Route: 048
  6. AUGMENTIN [Concomitant]
     Active Substance: AMOXICILLIN\CLAVULANATE POTASSIUM
     Dosage: UNK, 2X/DAY(AMOXICILLIN SODIUM-875/CLAVULANATE POTASSIUM-125)
     Route: 048
     Dates: end: 20150115
  7. DAYTIME COLD AND FLU RELIEF [Concomitant]
     Active Substance: ACETAMINOPHEN\DEXTROMETHORPHAN HYDROBROMIDE\PHENYLEPHRINE HYDROCHLORIDE
     Dosage: 30ML,AS NEEDED,(DEXTROMETHORPHAN HYDROBROMIDE-10MG/15ML,PCM-5MG/15ML,PHENYLEPHRINE HCL325MG/15ML)
  8. ASPIRIN. [Concomitant]
     Active Substance: ASPIRIN
     Dosage: 325 MG, 1X/DAY
     Route: 048
     Dates: end: 20150410
  9. LYRICA [Suspect]
     Active Substance: PREGABALIN
     Dosage: 50 MG, 2X/DAY
     Route: 048
     Dates: end: 20150408
  10. VITAMIN D3 [Concomitant]
     Active Substance: CHOLECALCIFEROL
     Dosage: UNK, 1X/DAY, (400UNIT/ML)
     Route: 048
     Dates: end: 20150410
  11. CYMBALTA [Concomitant]
     Active Substance: DULOXETINE HYDROCHLORIDE
     Dosage: 30 MG, 2X/DAY
     Route: 048
  12. VITAMIN D3 [Concomitant]
     Active Substance: CHOLECALCIFEROL
     Dosage: UNK, 1X/DAY, (400UNIT/ML)
     Route: 048
  13. HYDROCODONE BITARTRATE AND ACETAMINOPHEN [Concomitant]
     Active Substance: ACETAMINOPHEN\HYDROCODONE BITARTRATE
     Dosage: 1 DF, AS NEEDED,(HYDROCODONE10MG-ACETAMINOPHEN325MG), (EVERY 6 HRS)
     Route: 048
  14. TRAZODONE HYDROCHLORIDE. [Concomitant]
     Active Substance: TRAZODONE HYDROCHLORIDE
     Dosage: 50 MG, 1X/DAY, (AT BEDTIME)
     Route: 048
  15. NAPROXEN. [Concomitant]
     Active Substance: NAPROXEN
     Dosage: 500 MG, AS NEEDED, (EVERY 12HRS)
     Route: 048
     Dates: end: 20150408
  16. FLONASE [Concomitant]
     Active Substance: FLUTICASONE PROPIONATE
     Dosage: UNK, 1X/DAY, (50MCG/ACT 1 SPRAY IN EACH NOSTRIL)
     Route: 045
  17. LISINOPRIL-HYDROCHLOROTHIAZIDE [Concomitant]
     Active Substance: HYDROCHLOROTHIAZIDE\LISINOPRIL
     Dosage: 1 DF, 1X/DAY, (HYDROCHLOROTHIAZIDE-10MG, LISINOPRIL-125MG)
     Route: 048
  18. ASPIRIN. [Concomitant]
     Active Substance: ASPIRIN
     Dosage: 325 MG, 1X/DAY
     Route: 048

REACTIONS (9)
  - Platelet count increased [Unknown]
  - White blood cell count increased [Unknown]
  - Fatigue [Unknown]
  - Neutrophil count increased [Unknown]
  - Acute sinusitis [Unknown]
  - Haemoglobin increased [Unknown]
  - Candida infection [Unknown]
  - Malaise [Unknown]
  - Headache [Unknown]
